FAERS Safety Report 12563113 (Version 1)
Quarter: 2016Q3

REPORT INFORMATION
  Report Type: Spontaneous
  Country: US (occurrence: US)
  Receive Date: 20160715
  Receipt Date: 20160715
  Transmission Date: 20161109
  Serious: Yes (Hospitalization, Other)
  Sender: FDA-Public Use
  Company Number: US-BAUSCH-BL-2016-015861

PATIENT
  Age: 61 Year
  Sex: Female

DRUGS (7)
  1. OLANZAPINE. [Suspect]
     Active Substance: OLANZAPINE
     Indication: NAUSEA
  2. FUOROURACIL [Concomitant]
     Indication: PANCREATIC CARCINOMA METASTATIC
     Dosage: OVER 46 HOURS
     Route: 042
  3. OLANZAPINE. [Suspect]
     Active Substance: OLANZAPINE
     Indication: VOMITING
     Route: 048
  4. FOLINIC ACID [Concomitant]
     Active Substance: LEUCOVORIN
     Indication: PANCREATIC CARCINOMA METASTATIC
     Route: 065
  5. LORAZEPAM. [Interacting]
     Active Substance: LORAZEPAM
     Indication: NAUSEA
     Route: 042
  6. LORAZEPAM. [Suspect]
     Active Substance: LORAZEPAM
     Indication: ANXIETY
     Route: 048
  7. OXALIPLATIN. [Concomitant]
     Active Substance: OXALIPLATIN
     Indication: PANCREATIC CARCINOMA METASTATIC
     Dosage: OVER 2 HOURS
     Route: 042

REACTIONS (5)
  - Respiratory depression [Recovered/Resolved]
  - Drug interaction [Unknown]
  - Delirium [Recovered/Resolved]
  - Hypotension [Recovered/Resolved]
  - Toxicity to various agents [Recovered/Resolved]
